FAERS Safety Report 22089975 (Version 1)
Quarter: 2023Q1

REPORT INFORMATION
  Report Type: Spontaneous
  Country: US (occurrence: None)
  Receive Date: 20230313
  Receipt Date: 20230313
  Transmission Date: 20230417
  Serious: Yes (Hospitalization)
  Sender: FDA-Public Use
  Company Number: None

PATIENT
  Sex: Female

DRUGS (10)
  1. ALECENSA [Suspect]
     Active Substance: ALECTINIB HYDROCHLORIDE
     Indication: Lung neoplasm malignant
     Dosage: FREQUENCY : EVERY 12 HOURS;?
     Route: 048
     Dates: start: 20170805
  2. AZITHROMYCIN TAB 500MG [Concomitant]
  3. CALC/MAGNES TAB 500-250 [Concomitant]
  4. CO Q 10 CAP 100MG [Concomitant]
  5. CULTURELLE CAP [Concomitant]
  6. DEXAMETHASONE [Concomitant]
     Active Substance: DEXAMETHASONE
  7. DONEPEZIL HYDROCHLORIDE [Concomitant]
     Active Substance: DONEPEZIL HYDROCHLORIDE
  8. MILK THISTLE CAP [Concomitant]
  9. MULTIVITAL TAB [Concomitant]
  10. NP THYROID [Concomitant]
     Active Substance: LEVOTHYROXINE\LIOTHYRONINE

REACTIONS (5)
  - Pulmonary embolism [None]
  - Oedema [None]
  - Fatigue [None]
  - Constipation [None]
  - Therapy interrupted [None]
